FAERS Safety Report 17473436 (Version 6)
Quarter: 2020Q2

REPORT INFORMATION
  Report Type: Report from Study
  Country: GB (occurrence: GB)
  Receive Date: 20200228
  Receipt Date: 20200527
  Transmission Date: 20200713
  Serious: Yes (Hospitalization, Other)
  Sender: FDA-Public Use
  Company Number: GB-ASPEN-GLO2020GB002113

PATIENT
  Age: 74 Year
  Sex: Male

DRUGS (22)
  1. DEXAMETHASONE. [Suspect]
     Active Substance: DEXAMETHASONE
     Dosage: 40 MILLIGRAM WEEKLY
     Route: 048
     Dates: start: 20200131, end: 20200206
  2. REVLIMID [Suspect]
     Active Substance: LENALIDOMIDE
     Dosage: 315 MG, 1 DOSE 28 DAYS
     Route: 048
     Dates: start: 20200228
  3. VALACICLOVIR [Concomitant]
     Active Substance: VALACYCLOVIR HYDROCHLORIDE
     Indication: PRODUCT USED FOR UNKNOWN INDICATION
     Dosage: 500 MG, QD
     Route: 048
     Dates: start: 20191231
  4. VELCADE [Suspect]
     Active Substance: BORTEZOMIB
     Dosage: 1.3 MILLIGRAM/SQ. METER
     Route: 058
     Dates: start: 20200103, end: 20200130
  5. REVLIMID [Suspect]
     Active Substance: LENALIDOMIDE
     Indication: PLASMA CELL MYELOMA
     Dosage: 25 MILLIGRAM WEEKLY
     Route: 048
     Dates: start: 20200131, end: 20200205
  6. AMLODIPINE [Concomitant]
     Active Substance: AMLODIPINE BESYLATE
     Indication: PRODUCT USED FOR UNKNOWN INDICATION
     Dosage: 5 MG, QD
     Route: 048
     Dates: start: 2019
  7. PREDNISOLONE. [Concomitant]
     Active Substance: PREDNISOLONE
     Dosage: 20 MG, QD
     Route: 048
     Dates: start: 20200215, end: 20200217
  8. PIRITON [Concomitant]
     Active Substance: CHLORPHENIRAMINE MALEATE
     Indication: PRODUCT USED FOR UNKNOWN INDICATION
     Dosage: 4 MG
     Route: 048
  9. HYDROCORTISONE PROBUTAT [Concomitant]
     Indication: PRODUCT USED FOR UNKNOWN INDICATION
     Dosage: 4 UNK, QD
     Route: 061
     Dates: start: 20200206
  10. COTRIMOXAZOLE [Concomitant]
     Active Substance: SULFAMETHOXAZOLE\TRIMETHOPRIM
     Indication: PRODUCT USED FOR UNKNOWN INDICATION
     Dosage: 480 MG, QD
     Route: 048
     Dates: start: 20191231, end: 20200210
  11. METOCLOPRAMIDE. [Concomitant]
     Active Substance: METOCLOPRAMIDE
     Indication: PRODUCT USED FOR UNKNOWN INDICATION
     Dosage: 60 MG, QD
     Route: 048
     Dates: start: 20200103
  12. DEXAMETHASONE. [Suspect]
     Active Substance: DEXAMETHASONE
     Indication: PLASMA CELL MYELOMA
     Dosage: 40 MILLIGRAM WEEKLY
     Route: 048
     Dates: start: 20200103, end: 20200130
  13. ZOLEDRONIC ACID. [Concomitant]
     Active Substance: ZOLEDRONIC ACID
     Indication: PRODUCT USED FOR UNKNOWN INDICATION
     Dosage: 16 MG, 1 DOSE WEEKLY
     Route: 041
     Dates: start: 20200103
  14. AVENO [Concomitant]
     Indication: PRODUCT USED FOR UNKNOWN INDICATION
     Dosage: 4 UNK, QD
     Route: 061
     Dates: start: 20200208
  15. VELCADE [Suspect]
     Active Substance: BORTEZOMIB
     Indication: PLASMA CELL MYELOMA
     Dosage: 1.3 MILLIGRAM/SQ. METER WEEKLY
     Route: 058
     Dates: start: 20200131, end: 20200206
  16. REVLIMID [Suspect]
     Active Substance: LENALIDOMIDE
     Dosage: 25 MILLIGRAM WEEKLY
     Route: 048
     Dates: start: 20200103, end: 20200130
  17. CO-AMOXICLAV [Concomitant]
     Active Substance: AMOXICILLIN\CLAVULANATE POTASSIUM
     Indication: PRODUCT USED FOR UNKNOWN INDICATION
     Dosage: 3.6 G, QD
     Route: 041
     Dates: start: 20200207, end: 20200210
  18. PREDNISOLONE. [Concomitant]
     Active Substance: PREDNISOLONE
     Indication: PRODUCT USED FOR UNKNOWN INDICATION
     Dosage: 40 MG, QD
     Route: 048
     Dates: start: 20200210
  19. ASPIRIN. [Concomitant]
     Active Substance: ASPIRIN
     Indication: PRODUCT USED FOR UNKNOWN INDICATION
     Dosage: 75 MG, QD
     Route: 048
     Dates: start: 20191231
  20. CLEXANE [Concomitant]
     Active Substance: ENOXAPARIN SODIUM
     Indication: PRODUCT USED FOR UNKNOWN INDICATION
     Dosage: 40 MG, QD
     Route: 058
     Dates: start: 20200208, end: 20200210
  21. ESOMEPRAZOLE. [Concomitant]
     Active Substance: ESOMEPRAZOLE MAGNESIUM
     Indication: PRODUCT USED FOR UNKNOWN INDICATION
     Dosage: 40 MG, QD
     Route: 048
     Dates: start: 20191231
  22. PARACETAMOL [Concomitant]
     Active Substance: ACETAMINOPHEN
     Indication: PRODUCT USED FOR UNKNOWN INDICATION
     Dosage: 1 G
     Route: 041

REACTIONS (4)
  - Pyrexia [Recovered/Resolved]
  - Rash [Recovered/Resolved]
  - Unevaluable event [Recovered/Resolved]
  - Syncope [Recovered/Resolved]

NARRATIVE: CASE EVENT DATE: 20200206
